FAERS Safety Report 23681190 (Version 1)
Quarter: 2024Q1

REPORT INFORMATION
  Report Type: Spontaneous
  Country: US (occurrence: US)
  Receive Date: 20240328
  Receipt Date: 20240328
  Transmission Date: 20240410
  Serious: No
  Sender: FDA-Public Use
  Company Number: US-HETERO-HET2024US00812

PATIENT
  Sex: Female
  Weight: 43.084 kg

DRUGS (1)
  1. ESOMEPRAZOLE [Suspect]
     Active Substance: ESOMEPRAZOLE
     Indication: Reflux gastritis
     Dosage: 40 MILLIGRAM, BID
     Route: 048
     Dates: start: 20240311, end: 20240321

REACTIONS (3)
  - Dyspnoea [Recovering/Resolving]
  - Chest pain [Recovering/Resolving]
  - Drug ineffective [Unknown]
